FAERS Safety Report 10956590 (Version 2)
Quarter: 2015Q2

REPORT INFORMATION
  Report Type: Report from Study
  Country: CA (occurrence: CA)
  Receive Date: 20150326
  Receipt Date: 20150430
  Transmission Date: 20150821
  Serious: Yes (Hospitalization, Other)
  Sender: FDA-Public Use
  Company Number: CA-ABBVIE-15K-028-1363318-00

PATIENT
  Sex: Male

DRUGS (1)
  1. HUMIRA [Suspect]
     Active Substance: ADALIMUMAB
     Indication: CROHN^S DISEASE
     Route: 058
     Dates: start: 20090611

REACTIONS (5)
  - Seizure [Unknown]
  - Liver transplant [Unknown]
  - Multiple fractures [Not Recovered/Not Resolved]
  - Encephalopathy [Unknown]
  - Small intestinal resection [Unknown]

NARRATIVE: CASE EVENT DATE: 2014
